FAERS Safety Report 23580439 (Version 1)
Quarter: 2024Q1

REPORT INFORMATION
  Report Type: Spontaneous
  Country: US (occurrence: None)
  Receive Date: 20240229
  Receipt Date: 20240229
  Transmission Date: 20240409
  Serious: Yes (Hospitalization)
  Sender: FDA-Public Use
  Company Number: None

PATIENT
  Age: 38 Year
  Sex: Female

DRUGS (3)
  1. ENBREL [Suspect]
     Active Substance: ETANERCEPT
     Dosage: 50MG QW SQ
     Route: 058
     Dates: start: 202310
  2. METHOCARBAMOL [Concomitant]
  3. MELOXICAM [Concomitant]

REACTIONS (8)
  - Arthralgia [None]
  - Back pain [None]
  - Burning sensation [None]
  - Hypokinesia [None]
  - Dysstasia [None]
  - Pain in extremity [None]
  - Condition aggravated [None]
  - Mental disorder [None]

NARRATIVE: CASE EVENT DATE: 20240216
